FAERS Safety Report 7243947-3 (Version None)
Quarter: 2011Q1

REPORT INFORMATION
  Report Type: 
  Country: None (occurrence: None)
  Receive Date: 20110125
  Receipt Date: 20110120
  Transmission Date: 20110831
  Serious: Yes (Other)
  Sender: FDA-Public Use
  Company Number: D0070046A

PATIENT
  Sex: Female

DRUGS (6)
  1. LAMICTAL [Suspect]
     Dosage: 50MG SEE DOSAGE TEXT
     Route: 048
     Dates: start: 20110120
  2. CIPRALEX [Suspect]
     Dosage: 20MG SEE DOSAGE TEXT
     Route: 048
     Dates: start: 20110120
  3. RAMIPRIL [Suspect]
     Route: 048
     Dates: start: 20110120
  4. SEROQUEL [Suspect]
     Dosage: 350MG SEE DOSAGE TEXT
     Route: 048
     Dates: start: 20110120
  5. SPIRONOLACTONE [Suspect]
     Route: 048
     Dates: start: 20110120
  6. MADOPAR [Suspect]
     Route: 048
     Dates: start: 20110120

REACTIONS (3)
  - ACCIDENTAL OVERDOSE [None]
  - HYPOTENSION [None]
  - MENTAL RETARDATION [None]
